FAERS Safety Report 12410154 (Version 1)
Quarter: 2016Q2

REPORT INFORMATION
  Report Type: Spontaneous
  Country: US (occurrence: US)
  Receive Date: 20160527
  Receipt Date: 20160527
  Transmission Date: 20160815
  Serious: Yes (Other)
  Sender: FDA-Public Use
  Company Number: US-HORIZON-PEN-0234-2016

PATIENT
  Age: 53 Year
  Sex: Female

DRUGS (2)
  1. BIOFREEZE [Concomitant]
     Active Substance: MENTHOL
     Route: 061
  2. PENNSAID [Suspect]
     Active Substance: DICLOFENAC SODIUM
     Indication: BURSITIS

REACTIONS (12)
  - Skin ulcer [Recovered/Resolved]
  - Off label use [Unknown]
  - Confusional state [Recovered/Resolved]
  - Decreased appetite [Recovered/Resolved]
  - Urticaria [Recovered/Resolved]
  - Rash [Not Recovered/Not Resolved]
  - Hyperhidrosis [Recovered/Resolved]
  - Pruritus [Recovered/Resolved]
  - Palpitations [Recovered/Resolved]
  - Dyspnoea [Recovered/Resolved]
  - Lip swelling [Recovered/Resolved]
  - Dizziness [Recovered/Resolved]

NARRATIVE: CASE EVENT DATE: 201605
